FAERS Safety Report 14378542 (Version 1)
Quarter: 2018Q1

REPORT INFORMATION
  Report Type: Spontaneous
  Country: FR (occurrence: FR)
  Receive Date: 20180112
  Receipt Date: 20180112
  Transmission Date: 20180509
  Serious: Yes (Life-Threatening, Hospitalization)
  Sender: FDA-Public Use
  Company Number: FR-CONCORDIA PHARMACEUTICALS INC.-E2B_00009412

PATIENT
  Age: 26 Year
  Sex: Male
  Weight: 115.5 kg

DRUGS (6)
  1. PREDNISOLONE. [Suspect]
     Active Substance: PREDNISOLONE
     Indication: DYSPNOEA
     Route: 048
     Dates: start: 20171110, end: 20171114
  2. PYOSTACINE [Concomitant]
     Active Substance: PRISTINAMYCIN
  3. AMOXICILLINE [Concomitant]
     Active Substance: AMOXICILLIN
  4. DOLIPRANE [Concomitant]
     Active Substance: ACETAMINOPHEN
  5. FORADIL [Concomitant]
     Active Substance: FORMOTEROL FUMARATE
  6. IBUPROFENE ARROW 400 MG, COMPRIM?? PELLICUL??{ [Suspect]
     Active Substance: IBUPROFEN
     Indication: CHEST PAIN
     Route: 048
     Dates: start: 20171110, end: 20171113

REACTIONS (2)
  - Pleural effusion [Recovering/Resolving]
  - Lung abscess [Recovering/Resolving]

NARRATIVE: CASE EVENT DATE: 20171123
